FAERS Safety Report 4996929-6 (Version None)
Quarter: 2006Q2

REPORT INFORMATION
  Report Type: 
  Country: None (occurrence: None)
  Receive Date: 20060509
  Receipt Date: 20060503
  Transmission Date: 20061013
  Serious: Yes (Hospitalization)
  Sender: FDA-Public Use
  Company Number: FR-GLAXOSMITHKLINE-B0422363A

PATIENT
  Age: 64 Year
  Sex: Female

DRUGS (1)
  1. ZINNAT [Suspect]
     Indication: BRONCHITIS
     Route: 048
     Dates: start: 20050114, end: 20050115

REACTIONS (2)
  - FACE OEDEMA [None]
  - PRURITUS [None]
